FAERS Safety Report 13330901 (Version 1)
Quarter: 2017Q1

REPORT INFORMATION
  Report Type: Spontaneous
  Country: US (occurrence: US)
  Receive Date: 20170314
  Receipt Date: 20170314
  Transmission Date: 20170428
  Serious: Yes (Other)
  Sender: FDA-Public Use
  Company Number: US-BION-006082

PATIENT
  Age: 58 Year
  Sex: Female

DRUGS (3)
  1. NEURONTIN [Concomitant]
     Active Substance: GABAPENTIN
     Indication: PAIN
  2. MOTRIN [Suspect]
     Active Substance: IBUPROFEN
     Indication: PAIN
     Dosage: EVERY SIX HOURS AS NEEDED?SINCE AT LEAST 2012?REPORTED TAKING IN AMOUNTS GREATER THAN PRESCRIBED
     Route: 048
  3. FLEXERIL [Concomitant]
     Active Substance: CYCLOBENZAPRINE HYDROCHLORIDE
     Indication: PAIN

REACTIONS (5)
  - Gastritis [Unknown]
  - Substance dependence [Recovered/Resolved]
  - Drug ineffective [Not Recovered/Not Resolved]
  - Duodenitis [Unknown]
  - Incorrect dose administered [Not Recovered/Not Resolved]
